FAERS Safety Report 18492065 (Version 1)
Quarter: 2020Q4

REPORT INFORMATION
  Report Type: Spontaneous
  Country: None (occurrence: FR)
  Receive Date: 20201111
  Receipt Date: 20201111
  Transmission Date: 20210114
  Serious: Yes (Hospitalization, Other)
  Sender: FDA-Public Use
  Company Number: FR-AIR PRODUCTS AND CHEMICALS, INC. -2095820

PATIENT
  Age: 76 Year
  Sex: Male

DRUGS (1)
  1. OXYGEN. [Suspect]
     Active Substance: OXYGEN

REACTIONS (4)
  - Disseminated Bacillus Calmette-Guerin infection [None]
  - Pulmonary tuberculosis [None]
  - Granulomatous liver disease [None]
  - Pyrexia [None]
